FAERS Safety Report 7444629-5 (Version None)
Quarter: 2011Q2

REPORT INFORMATION
  Report Type: 
  Country: None (occurrence: None)
  Receive Date: 20110429
  Receipt Date: 20110425
  Transmission Date: 20111010
  Serious: Yes (Hospitalization)
  Sender: FDA-Public Use
  Company Number: JP-PFIZER INC-2011090667

PATIENT
  Age: 87 Year
  Sex: Male

DRUGS (2)
  1. ZOSYN [Suspect]
     Indication: MULTIPLE INJURIES
     Dosage: 4.5 G, 2X/DAY
     Route: 041
     Dates: start: 20110402, end: 20110412
  2. GASTER [Concomitant]
     Dosage: 40 MG/DAY
     Route: 048
     Dates: start: 20110325, end: 20110417

REACTIONS (4)
  - NEUTROPHIL COUNT DECREASED [None]
  - ASTHMA [None]
  - RASH [None]
  - ERYTHEMA [None]
